FAERS Safety Report 19122218 (Version 2)
Quarter: 2021Q2

REPORT INFORMATION
  Report Type: Report from Study
  Country: US (occurrence: US)
  Receive Date: 20210412
  Receipt Date: 20210421
  Transmission Date: 20210717
  Serious: Yes (Hospitalization, Other)
  Sender: FDA-Public Use
  Company Number: US-TAKEDA-2021TUS021905

PATIENT
  Age: 41 Year
  Sex: Female

DRUGS (4)
  1. TEDUGLUTIDE [Suspect]
     Active Substance: TEDUGLUTIDE
     Indication: SHORT-BOWEL SYNDROME
     Dosage: 0.433 MILLILITER, QD
     Route: 058
     Dates: start: 20201219
  2. TEDUGLUTIDE [Suspect]
     Active Substance: TEDUGLUTIDE
     Indication: SHORT-BOWEL SYNDROME
     Dosage: 0.433 MILLILITER, QD
     Route: 058
     Dates: start: 20201219
  3. TEDUGLUTIDE [Suspect]
     Active Substance: TEDUGLUTIDE
     Indication: SHORT-BOWEL SYNDROME
     Dosage: 0.433 MILLILITER, QD
     Route: 058
     Dates: start: 20201219
  4. TEDUGLUTIDE [Suspect]
     Active Substance: TEDUGLUTIDE
     Indication: SHORT-BOWEL SYNDROME
     Dosage: 0.433 MILLILITER, QD
     Route: 058
     Dates: start: 20201219

REACTIONS (3)
  - Fungal infection [Unknown]
  - Sepsis [Unknown]
  - Vascular device infection [Unknown]

NARRATIVE: CASE EVENT DATE: 20210326
